FAERS Safety Report 13254750 (Version 2)
Quarter: 2017Q1

REPORT INFORMATION
  Report Type: Spontaneous
  Country: JP (occurrence: JP)
  Receive Date: 20170221
  Receipt Date: 20170301
  Transmission Date: 20170428
  Serious: Yes (Other)
  Sender: FDA-Public Use
  Company Number: JP-ROCHE-1896850

PATIENT
  Age: 3 Year
  Sex: Male
  Weight: 12 kg

DRUGS (2)
  1. TAMIFLU [Suspect]
     Active Substance: OSELTAMIVIR PHOSPHATE
     Indication: HAEMOPHILUS INFECTION
     Route: 048
     Dates: start: 20140328, end: 20140401
  2. ALPINY [Concomitant]
     Active Substance: ACETAMINOPHEN
     Dosage: WHEN YOU HAVE A FEVER OF MORE THAN 38.5 DEGREE C, TAKEN ONCE A PIECE.
     Route: 054

REACTIONS (1)
  - Seizure [Recovered/Resolved]

NARRATIVE: CASE EVENT DATE: 20140328
